FAERS Safety Report 23181121 (Version 1)
Quarter: 2023Q4

REPORT INFORMATION
  Report Type: Spontaneous
  Country: US (occurrence: None)
  Receive Date: 20231113
  Receipt Date: 20231113
  Transmission Date: 20240109
  Serious: Yes (Other)
  Sender: FDA-Public Use
  Company Number: None

PATIENT
  Age: 4 Year
  Sex: Male

DRUGS (2)
  1. HIZENTRA [Suspect]
     Active Substance: HUMAN IMMUNOGLOBULIN G
     Dosage: FREQUENCY : WEEKLY;?
     Route: 058
  2. HIZENTRA [Suspect]
     Active Substance: HUMAN IMMUNOGLOBULIN G
     Dosage: FREQUENCY : WEEKLY;?
     Route: 058

REACTIONS (3)
  - Dyspnoea [None]
  - Retching [None]
  - Cough [None]

NARRATIVE: CASE EVENT DATE: 20231107
